FAERS Safety Report 26172692 (Version 1)
Quarter: 2025Q4

REPORT INFORMATION
  Report Type: Spontaneous
  Country: US (occurrence: US)
  Receive Date: 20251218
  Receipt Date: 20251218
  Transmission Date: 20260118
  Serious: No
  Sender: MERCK SHARP & DOHME LLC
  Company Number: US-009507513-2357661

PATIENT
  Sex: Female

DRUGS (4)
  1. WINREVAIR [Suspect]
     Active Substance: SOTATERCEPT-CSRK
     Indication: Pulmonary arterial hypertension
     Dosage: 1.3ML EVERY 3 WEEKS
     Route: 058
     Dates: start: 202507, end: 202507
  2. WINREVAIR [Suspect]
     Active Substance: SOTATERCEPT-CSRK
     Dosage: 1.3ML EVERY 3 WEEKS
     Route: 058
     Dates: start: 2025
  3. WINREVAIR [Suspect]
     Active Substance: SOTATERCEPT-CSRK
  4. WINREVAIR [Suspect]
     Active Substance: SOTATERCEPT-CSRK

REACTIONS (2)
  - Blood test abnormal [Recovering/Resolving]
  - Haemoglobin increased [Recovering/Resolving]

NARRATIVE: CASE EVENT DATE: 20250101
